FAERS Safety Report 9144781 (Version 3)
Quarter: 2014Q2

REPORT INFORMATION
  Report Type: Report from Study
  Country: JP (occurrence: JP)
  Receive Date: 20130306
  Receipt Date: 20140411
  Transmission Date: 20141212
  Serious: Yes (Other)
  Sender: FDA-Public Use
  Company Number: PHHY2012JP127999

PATIENT
  Age: 26 Year
  Sex: Male

DRUGS (3)
  1. ACZ885 [Suspect]
     Indication: CHRONIC INFANTILE NEUROLOGICAL CUTANEOUS AND ARTICULAR SYNDROME
     Dosage: UNK
  2. ACZ885 [Suspect]
     Dosage: 150 MG, UNK
     Route: 058
     Dates: end: 20120907
  3. ACZ885 [Suspect]
     Dosage: 150 MG, UNK
     Route: 058
     Dates: end: 20140124

REACTIONS (3)
  - Gastrointestinal haemorrhage [Recovered/Resolved]
  - Anal fissure [Recovered/Resolved]
  - Gastroenteritis viral [Recovered/Resolved]
